FAERS Safety Report 5922550-9 (Version None)
Quarter: 2008Q4

REPORT INFORMATION
  Report Type: 
  Country: None (occurrence: None)
  Receive Date: 20081017
  Receipt Date: 20081009
  Transmission Date: 20090506
  Serious: Yes (Other)
  Sender: FDA-Public Use
  Company Number: PHHY2008CH19752

PATIENT
  Sex: Female

DRUGS (2)
  1. ACLASTA [Suspect]
     Indication: OSTEOPOROSIS
     Dosage: 5 MG
     Dates: start: 20080829
  2. ANALGESICS [Suspect]

REACTIONS (3)
  - DYSPNOEA EXERTIONAL [None]
  - ECG SIGNS OF MYOCARDIAL ISCHAEMIA [None]
  - PULMONARY EMBOLISM [None]
